FAERS Safety Report 4373871-5 (Version None)
Quarter: 2004Q2

REPORT INFORMATION
  Report Type: 
  Country: None (occurrence: None)
  Receive Date: 20040609
  Receipt Date: 20040601
  Transmission Date: 20050107
  Serious: Yes (Life-Threatening, Other)
  Sender: FDA-Public Use
  Company Number: DE-JNJFOC-20040600683

PATIENT
  Sex: Female

DRUGS (2)
  1. REMICADE [Suspect]
     Indication: CROHN'S DISEASE
     Route: 042
  2. IMMUSEK [Concomitant]
     Indication: CROHN'S DISEASE
     Route: 065

REACTIONS (3)
  - EXANTHEM [None]
  - HYPERSENSITIVITY [None]
  - NAUSEA [None]
